FAERS Safety Report 5096653-8 (Version None)
Quarter: 2006Q3

REPORT INFORMATION
  Report Type: 
  Country: None (occurrence: None)
  Receive Date: 20060830
  Receipt Date: 20060821
  Transmission Date: 20061208
  Serious: Yes (Other)
  Sender: FDA-Public Use
  Company Number: HQWYE252320AUG03

PATIENT
  Sex: Male

DRUGS (1)
  1. GEMTUZUMAB OZOGAMICIN (GEMTUZUMAB OZOGAMICIN, INJECTION) [Suspect]
     Indication: JUVENILE CHRONIC MYELOMONOCYTIC LEUKAEMIA
     Dosage: A SINGLE DOSE, 9 MG/M^2

REACTIONS (6)
  - ANAPHYLACTIC SHOCK [None]
  - HAEMATOTOXICITY [None]
  - HYPERBILIRUBINAEMIA [None]
  - JUVENILE CHRONIC MYELOMONOCYTIC LEUKAEMIA [None]
  - MALIGNANT NEOPLASM PROGRESSION [None]
  - TRANSAMINASES INCREASED [None]
